FAERS Safety Report 7083413-1 (Version None)
Quarter: 2010Q4

REPORT INFORMATION
  Report Type: 
  Country: None (occurrence: None)
  Receive Date: 20101104
  Receipt Date: 20101029
  Transmission Date: 20110411
  Serious: Yes (Hospitalization)
  Sender: FDA-Public Use
  Company Number: A0889706A

PATIENT
  Age: 48 Year
  Sex: Female

DRUGS (3)
  1. MALARONE [Suspect]
     Indication: MALARIA PROPHYLAXIS
     Dosage: 250MG CYCLIC
     Route: 048
     Dates: start: 20100303, end: 20101004
  2. BIRTH CONTROL PILL [Concomitant]
  3. NEXIUM [Concomitant]

REACTIONS (5)
  - ABDOMINAL PAIN [None]
  - ENTERITIS [None]
  - ILEITIS [None]
  - NAUSEA [None]
  - VOMITING [None]
